FAERS Safety Report 8925073 (Version 1)
Quarter: 2012Q4

REPORT INFORMATION
  Report Type: 
  Country: US (occurrence: US)
  Receive Date: 20121126
  Receipt Date: 20121126
  Transmission Date: 20130627
  Serious: Yes (Hospitalization, Other)
  Sender: FDA-Public Use
  Company Number: US-BRISTOL-MYERS SQUIBB COMPANY-17136383

PATIENT
  Age: 60 Year
  Sex: Male

DRUGS (2)
  1. GLUCOPHAGE [Suspect]
     Indication: TYPE 2 DIABETES MELLITUS
  2. LANTUS [Suspect]
     Indication: TYPE 2 DIABETES MELLITUS
     Dosage: 100IU/ML
Pareneral injectn
     Dates: start: 201111, end: 20121011

REACTIONS (6)
  - Cellulitis [Unknown]
  - Photosensitivity reaction [Unknown]
  - Rash [Unknown]
  - Dyspnoea [Unknown]
  - Speech disorder [Unknown]
  - Visual impairment [Unknown]
